FAERS Safety Report 24104732 (Version 1)
Quarter: 2024Q3

REPORT INFORMATION
  Report Type: Spontaneous
  Country: NZ (occurrence: NZ)
  Receive Date: 20240717
  Receipt Date: 20240717
  Transmission Date: 20241017
  Serious: Yes (Death, Other)
  Sender: MYLAN
  Company Number: NZ-MYLANLABS-2024M1066580

PATIENT
  Age: 56 Year
  Sex: Female

DRUGS (1)
  1. CLOZARIL [Suspect]
     Active Substance: CLOZAPINE
     Indication: Schizophrenia
     Dosage: UNK
     Route: 048
     Dates: start: 20081107

REACTIONS (5)
  - Death [Fatal]
  - Loss of consciousness [Unknown]
  - Unresponsive to stimuli [Unknown]
  - Gait disturbance [Unknown]
  - Dyspnoea [Unknown]

NARRATIVE: CASE EVENT DATE: 20240519
